FAERS Safety Report 5684869-9 (Version None)
Quarter: 2008Q1

REPORT INFORMATION
  Report Type: 
  Country: None (occurrence: None)
  Receive Date: 20080328
  Receipt Date: 19910304
  Transmission Date: 20080703
  Serious: Yes (Death, Other)
  Sender: FDA-Public Use
  Company Number: US-ROCHE-16238

PATIENT
  Age: 27 Year
  Sex: Female

DRUGS (3)
  1. NAPROSYN [Suspect]
     Indication: DRUG USE FOR UNKNOWN INDICATION
     Route: 048
     Dates: end: 19890611
  2. COCAINE [Suspect]
     Indication: DRUG USE FOR UNKNOWN INDICATION
     Route: 051
     Dates: end: 19890611
  3. HEROIN [Suspect]
     Indication: DRUG USE FOR UNKNOWN INDICATION
     Route: 051

REACTIONS (10)
  - ANURIA [None]
  - BLOOD PRESSURE DECREASED [None]
  - BODY TEMPERATURE INCREASED [None]
  - BRONCHOPNEUMONIA [None]
  - CARDIO-RESPIRATORY ARREST [None]
  - ECCHYMOSIS [None]
  - LOSS OF CONSCIOUSNESS [None]
  - OVERDOSE [None]
  - RENAL FAILURE ACUTE [None]
  - SUPRAVENTRICULAR TACHYCARDIA [None]
